FAERS Safety Report 8997376 (Version 1)
Quarter: 2013Q1

REPORT INFORMATION
  Report Type: Spontaneous
  Country: IT (occurrence: IT)
  Receive Date: 20130104
  Receipt Date: 20130104
  Transmission Date: 20140127
  Serious: Yes (Hospitalization)
  Sender: FDA-Public Use
  Company Number: IT-ASTRAZENECA-2012SE96216

PATIENT
  Age: 92 Year
  Sex: Male

DRUGS (10)
  1. SEROQUEL [Suspect]
     Route: 048
     Dates: start: 20121115
  2. ENTUMIN [Suspect]
     Route: 048
     Dates: start: 20121115
  3. PANTOPRAZOLE [Concomitant]
  4. SERTRALINE [Concomitant]
  5. SUCRALFIN (SUCRALFATE) [Concomitant]
  6. AVODART (DUTASTERIDE) [Concomitant]
  7. EPREX (EPOETIN ALFA) [Concomitant]
  8. ROCEFIN (CEFTRIAXONE) [Concomitant]
  9. LASIX (FUROSEMIDE) [Concomitant]
  10. VENITRIN (NITROGLYCERIN) [Concomitant]

REACTIONS (4)
  - Sopor [Unknown]
  - Renal failure acute [Unknown]
  - Metabolic acidosis [Unknown]
  - Cognitive disorder [Unknown]
